FAERS Safety Report 9333756 (Version 5)
Quarter: 2013Q3

REPORT INFORMATION
  Report Type: Spontaneous
  Country: US (occurrence: US)
  Receive Date: 20130606
  Receipt Date: 20130816
  Transmission Date: 20140515
  Serious: Yes (Other)
  Sender: FDA-Public Use
  Company Number: US-PFIZER INC-2013170278

PATIENT
  Age: 65 Year
  Sex: Female
  Weight: 96.15 kg

DRUGS (10)
  1. CELEBREX [Suspect]
     Indication: SCIATICA
     Dosage: 200 MG, 1X/DAY (QD)
     Route: 048
     Dates: start: 20130524, end: 20130527
  2. CELEBREX [Suspect]
     Indication: ARTHRALGIA
  3. CELEBREX [Suspect]
     Indication: OSTEOARTHRITIS
  4. LIPITOR [Suspect]
     Indication: BLOOD CHOLESTEROL INCREASED
     Dosage: 40 MG, 1X/DAY
     Dates: start: 2009
  5. DETROL LA [Suspect]
     Indication: BLADDER DISORDER
     Dosage: 20 MG, 1X/DAY
     Dates: start: 200905
  6. PREDNISONE [Suspect]
     Indication: HYPERSENSITIVITY
     Dosage: 60 MG, 1X/DAY
     Route: 048
     Dates: start: 20130527, end: 201305
  7. PREDNISONE [Suspect]
     Indication: HYPERSENSITIVITY
     Dosage: 20 MG, 1X/DAY
     Dates: start: 20130602
  8. CETIRIZINE [Suspect]
     Indication: PRURITUS
     Dosage: 10 MG, 2X/DAY
  9. BABY ASPIRIN [Concomitant]
     Dosage: UNK
  10. CALCITONIN, SALMON [Concomitant]
     Indication: BONE DISORDER
     Dosage: UNK, 1X/DAY
     Dates: start: 200911

REACTIONS (17)
  - Haemorrhage [Unknown]
  - Hypersensitivity [Unknown]
  - Swelling [Unknown]
  - Headache [Unknown]
  - Pruritus [Unknown]
  - Erythema [Unknown]
  - Ear swelling [Unknown]
  - Eye swelling [Unknown]
  - Pigmentation disorder [Unknown]
  - Blister [Unknown]
  - Neoplasm [Unknown]
  - Movement disorder [Unknown]
  - Oedema peripheral [Unknown]
  - Inflammation [Unknown]
  - Drug ineffective [Unknown]
  - Lip swelling [Recovered/Resolved]
  - Urticaria [Recovered/Resolved]
